FAERS Safety Report 12236042 (Version 1)
Quarter: 2016Q2

REPORT INFORMATION
  Report Type: Spontaneous
  Country: IN (occurrence: IN)
  Receive Date: 20160404
  Receipt Date: 20160404
  Transmission Date: 20160815
  Serious: Yes (Other)
  Sender: FDA-Public Use
  Company Number: IN-BAUSCH-BL-2016-007745

PATIENT
  Age: 5 Year
  Sex: Female

DRUGS (4)
  1. DAUNORUBICIN [Suspect]
     Active Substance: DAUNORUBICIN
     Indication: B PRECURSOR TYPE ACUTE LEUKAEMIA
     Route: 065
  2. VINCRISTINE [Suspect]
     Active Substance: VINCRISTINE
     Indication: B PRECURSOR TYPE ACUTE LEUKAEMIA
     Dosage: THREE DOSES
     Route: 065
  3. L-ASPARAGINASE [Suspect]
     Active Substance: ASPARAGINASE
     Indication: B PRECURSOR TYPE ACUTE LEUKAEMIA
  4. PREDNISOLONE. [Suspect]
     Active Substance: PREDNISOLONE
     Indication: B PRECURSOR TYPE ACUTE LEUKAEMIA
     Route: 065

REACTIONS (1)
  - Febrile neutropenia [Recovered/Resolved]
